FAERS Safety Report 4477951-5 (Version None)
Quarter: 2004Q4

REPORT INFORMATION
  Report Type: 
  Country: None (occurrence: None)
  Receive Date: 20041018
  Receipt Date: 20041012
  Transmission Date: 20050328
  Serious: Yes (Other)
  Sender: FDA-Public Use
  Company Number: US-MERCK-0410USA01715

PATIENT
  Age: 71 Year
  Sex: Male

DRUGS (4)
  1. [THERAPY UNSPECIFIED] [Concomitant]
     Route: 065
  2. CELEBREX [Concomitant]
     Route: 065
  3. VIOXX [Suspect]
     Indication: ARTHRITIS
     Route: 048
     Dates: end: 20040930
  4. COUMADIN [Concomitant]
     Route: 065

REACTIONS (3)
  - CORONARY ARTERY THROMBOSIS [None]
  - INTRACARDIAC THROMBUS [None]
  - THROMBOSIS [None]
